FAERS Safety Report 5865795-9 (Version None)
Quarter: 2008Q3

REPORT INFORMATION
  Report Type: 
  Country: None (occurrence: None)
  Receive Date: 20080829
  Receipt Date: 20080818
  Transmission Date: 20090109
  Serious: Yes (Other)
  Sender: FDA-Public Use
  Company Number: US-ASTRAZENECA-2008AC02238

PATIENT
  Age: 31 Year
  Sex: Female

DRUGS (8)
  1. HYPERBARIC BUPIVACAINE [Suspect]
     Indication: ANAESTHESIA
     Dosage: 12 MG
     Route: 037
  2. FENTANYL-25 [Suspect]
     Indication: ANAESTHESIA
     Dosage: 10 UG
  3. ATROPINE [Suspect]
     Indication: SINUS BRADYCARDIA
     Dosage: 2 DOSES TOTAL 0.8 MG
     Route: 042
  4. ATROPINE [Suspect]
     Indication: HYPOTENSION
     Dosage: 2 DOSES TOTAL 0.8 MG
     Route: 042
  5. MORPHINE [Suspect]
     Indication: ANAESTHESIA
     Dosage: 0.2 MG
  6. EPHEDRINE SUL CAP [Suspect]
     Indication: HYPOTENSION
     Dosage: MUTIPLE DOSES, TOTAL 50 MG
     Route: 042
  7. EPHEDRINE SUL CAP [Suspect]
     Indication: SINUS BRADYCARDIA
     Dosage: MUTIPLE DOSES, TOTAL 50 MG
     Route: 042
  8. PHENYLEPHRINE [Suspect]
     Indication: BLOOD PRESSURE MANAGEMENT
     Dosage: TOTAL 50 MG

REACTIONS (4)
  - HYPOTENSION [None]
  - SINUS BRADYCARDIA [None]
  - SINUS TACHYCARDIA [None]
  - STRESS CARDIOMYOPATHY [None]
